FAERS Safety Report 5532388-2 (Version None)
Quarter: 2007Q4

REPORT INFORMATION
  Report Type: 
  Country: None (occurrence: None)
  Receive Date: 20071203
  Receipt Date: 20071129
  Transmission Date: 20080405
  Serious: Yes (Death)
  Sender: FDA-Public Use
  Company Number: DE-ROXANE LABORATORIES, INC-2007-BP-25239RO

PATIENT
  Age: 32 Year
  Sex: Female

DRUGS (7)
  1. METHOTREXATE [Suspect]
     Indication: BURKITT'S LYMPHOMA
     Route: 042
  2. METHOTREXATE [Suspect]
     Route: 037
  3. DEXAMETHASONE [Suspect]
     Indication: BURKITT'S LYMPHOMA
     Route: 037
  4. IFOSFAMIDE [Suspect]
     Indication: BURKITT'S LYMPHOMA
     Route: 042
  5. CYTARABINE [Suspect]
     Indication: BURKITT'S LYMPHOMA
     Route: 037
  6. VINCRISTINE [Suspect]
     Indication: BURKITT'S LYMPHOMA
     Route: 048
  7. LEUCOVORIN CALCIUM [Concomitant]

REACTIONS (2)
  - ENCEPHALOPATHY [None]
  - GRAND MAL CONVULSION [None]
